FAERS Safety Report 19498462 (Version 1)
Quarter: 2021Q3

REPORT INFORMATION
  Report Type: Spontaneous
  Country: US (occurrence: US)
  Receive Date: 20210706
  Receipt Date: 20210706
  Transmission Date: 20211014
  Serious: Yes (Hospitalization)
  Sender: FDA-Public Use
  Company Number: US-ORPHANEU-2020001208

PATIENT

DRUGS (1)
  1. CARBAGLU [Suspect]
     Active Substance: CARGLUMIC ACID
     Indication: METHYLMALONIC ACIDURIA
     Dosage: 100 MILLIGRAM, TID
     Dates: start: 20200215

REACTIONS (3)
  - Pyrexia [Unknown]
  - Vascular device infection [Unknown]
  - Off label use [Unknown]

NARRATIVE: CASE EVENT DATE: 20200319
